FAERS Safety Report 22882351 (Version 10)
Quarter: 2023Q4

REPORT INFORMATION
  Report Type: Report from Study
  Country: GB (occurrence: GB)
  Receive Date: 20230830
  Receipt Date: 20231123
  Transmission Date: 20240110
  Serious: Yes (Hospitalization)
  Sender: FDA-Public Use
  Company Number: GB-002147023-NVSC2023GB178850

PATIENT
  Age: 13 Year
  Sex: Male
  Weight: 27 kg

DRUGS (6)
  1. ALPELISIB [Suspect]
     Active Substance: ALPELISIB
     Indication: PIK3CA related overgrowth spectrum
     Dosage: 50 MG, Q24H (EVERY 24 HOURS)
     Route: 048
     Dates: start: 20221206
  2. ALPELISIB [Suspect]
     Active Substance: ALPELISIB
     Dosage: 125 MG
     Route: 048
     Dates: start: 20230418
  3. VIJOICE [Suspect]
     Active Substance: ALPELISIB
     Indication: PIK3CA related overgrowth spectrum
     Dosage: UNK
     Route: 048
     Dates: start: 20220815, end: 20220815
  4. IBUPROFEN [Concomitant]
     Active Substance: IBUPROFEN
     Indication: Pain
     Dosage: UNK
     Route: 065
     Dates: start: 202207
  5. IBUPROFEN [Concomitant]
     Active Substance: IBUPROFEN
     Indication: Mouth ulceration
     Dosage: UNK
     Route: 065
     Dates: start: 20230814, end: 20230816
  6. BENZYDAMINE [Concomitant]
     Active Substance: BENZYDAMINE
     Indication: Mouth ulceration
     Dosage: UNK
     Route: 065
     Dates: start: 20230814, end: 20230819

REACTIONS (1)
  - Diarrhoea [Recovered/Resolved]

NARRATIVE: CASE EVENT DATE: 20230815
